FAERS Safety Report 6964353-2 (Version None)
Quarter: 2010Q3

REPORT INFORMATION
  Report Type: 
  Country: None (occurrence: None)
  Receive Date: 20100903
  Receipt Date: 20100825
  Transmission Date: 20110219
  Serious: No
  Sender: FDA-Public Use
  Company Number: 2009BI029988

PATIENT
  Sex: Female

DRUGS (1)
  1. TYSABRI [Suspect]
     Indication: MULTIPLE SCLEROSIS
     Route: 042
     Dates: start: 20080903

REACTIONS (12)
  - ANXIETY [None]
  - ASTHENIA [None]
  - DEPRESSION [None]
  - DIZZINESS [None]
  - EMOTIONAL DISORDER [None]
  - FEELING ABNORMAL [None]
  - MALAISE [None]
  - MENTAL DISORDER [None]
  - MOBILITY DECREASED [None]
  - PAIN [None]
  - PRURITUS [None]
  - VISUAL IMPAIRMENT [None]
